FAERS Safety Report 17572508 (Version 3)
Quarter: 2020Q1

REPORT INFORMATION
  Report Type: Report from Study
  Country: JP (occurrence: JP)
  Receive Date: 20200323
  Receipt Date: 20200330
  Transmission Date: 20200409
  Serious: Yes (Life-Threatening)
  Sender: FDA-Public Use
  Company Number: JP-PFIZER INC-2020108947

PATIENT
  Age: 2 Year
  Sex: Male
  Weight: 8.5 kg

DRUGS (4)
  1. MIDAZOLAM. [Concomitant]
     Active Substance: MIDAZOLAM
     Dosage: 0.18 MG/KG/HOUR
     Route: 041
     Dates: start: 20200116, end: 20200117
  2. PRECEDEX [Suspect]
     Active Substance: DEXMEDETOMIDINE HYDROCHLORIDE
     Dosage: 0.6 MCG/KG/HOUR
     Route: 042
     Dates: start: 20200116, end: 20200117
  3. FENTANYL CITRATE. [Concomitant]
     Active Substance: FENTANYL CITRATE
     Dosage: 1.8 MCG/KG/HOUR
     Route: 041
     Dates: start: 20200116, end: 20200117
  4. PRECEDEX [Suspect]
     Active Substance: DEXMEDETOMIDINE HYDROCHLORIDE
     Indication: SEDATION
     Dosage: 0.4 MCG/KG/HOUR
     Route: 042
     Dates: start: 20200116, end: 20200116

REACTIONS (1)
  - Asthma [Recovered/Resolved]

NARRATIVE: CASE EVENT DATE: 20200117
